FAERS Safety Report 7815844-3 (Version None)
Quarter: 2011Q4

REPORT INFORMATION
  Report Type: 
  Country: None (occurrence: None)
  Receive Date: 20111014
  Receipt Date: 20111007
  Transmission Date: 20120403
  Serious: Yes (Other)
  Sender: FDA-Public Use
  Company Number: BR-SANOFI-AVENTIS-2011SA066033

PATIENT
  Age: 58 Year
  Sex: Female

DRUGS (4)
  1. DEVICE NOS [Suspect]
  2. MESTINON [Concomitant]
     Indication: MYASTHENIA GRAVIS
  3. LANTUS [Suspect]
     Route: 058
     Dates: start: 19970101
  4. PREDNISONE [Concomitant]
     Indication: EYELID PTOSIS
     Dates: end: 20110901

REACTIONS (4)
  - MACULAR OEDEMA [None]
  - HAEMANGIOMA OF LIVER [None]
  - DIABETIC RETINOPATHY [None]
  - HYPERGLYCAEMIA [None]
